FAERS Safety Report 5859550-3 (Version None)
Quarter: 2008Q3

REPORT INFORMATION
  Report Type: 
  Country: None (occurrence: None)
  Receive Date: 20080827
  Receipt Date: 20080821
  Transmission Date: 20090109
  Serious: Yes (Hospitalization)
  Sender: FDA-Public Use
  Company Number: A0744587A

PATIENT
  Age: 57 Year
  Sex: Male
  Weight: 127.3 kg

DRUGS (2)
  1. AVANDIA [Suspect]
     Dosage: 8MG PER DAY
     Route: 048
     Dates: start: 20000101, end: 20070601
  2. ASPIRIN [Concomitant]

REACTIONS (4)
  - MYOCARDIAL INFARCTION [None]
  - OEDEMA PERIPHERAL [None]
  - SUICIDAL IDEATION [None]
  - WEIGHT INCREASED [None]
